FAERS Safety Report 21637323 (Version 2)
Quarter: 2024Q2

REPORT INFORMATION
  Report Type: Report from Study
  Country: US (occurrence: US)
  Receive Date: 20221124
  Receipt Date: 20240410
  Transmission Date: 20240716
  Serious: No
  Sender: FDA-Public Use
  Company Number: US-ABBVIE-4186198

PATIENT
  Age: 61 Year
  Sex: Female

DRUGS (4)
  1. HUMIRA [Suspect]
     Active Substance: ADALIMUMAB
     Indication: Crohn^s disease
     Dosage: FORM STRENGTH 40 MILLIGRAM
     Route: 058
     Dates: start: 20210914
  2. HUMIRA [Suspect]
     Active Substance: ADALIMUMAB
     Dosage: 1 IN ONCE, DAY 1
     Route: 058
     Dates: start: 20210816, end: 20210816
  3. HUMIRA [Suspect]
     Active Substance: ADALIMUMAB
     Dosage: 1 IN ONCE, DAY 15
     Route: 058
     Dates: start: 20210830, end: 20210830
  4. HYDROCODONE [Concomitant]
     Active Substance: HYDROCODONE
     Indication: Product used for unknown indication

REACTIONS (13)
  - Skin mass [Not Recovered/Not Resolved]
  - Constipation [Unknown]
  - Insomnia [Unknown]
  - Flatulence [Recovered/Resolved]
  - Vomiting [Unknown]
  - Decreased appetite [Unknown]
  - Bronchial disorder [Recovering/Resolving]
  - Arthralgia [Unknown]
  - Fatigue [Unknown]
  - Depressed mood [Unknown]
  - Asthenia [Unknown]
  - Productive cough [Not Recovered/Not Resolved]
  - Depressed mood [Unknown]

NARRATIVE: CASE EVENT DATE: 20220801
